FAERS Safety Report 4606090-5 (Version None)
Quarter: 2005Q1

REPORT INFORMATION
  Report Type: 
  Country: None (occurrence: None)
  Receive Date: 20050311
  Receipt Date: 20041217
  Transmission Date: 20050727
  Serious: Yes (Hospitalization)
  Sender: FDA-Public Use
  Company Number: PHHO2004JP18201

PATIENT
  Age: 84 Year
  Sex: Male

DRUGS (6)
  1. ANPLAG [Concomitant]
     Indication: ATHEROSCLEROSIS OBLITERANS
     Dates: end: 20041201
  2. MAGNESIUM OXIDE [Concomitant]
     Indication: CONSTIPATION
     Dates: end: 20041201
  3. EPADEL [Concomitant]
     Indication: ATHEROSCLEROSIS OBLITERANS
     Dates: end: 20041201
  4. DIOVAN [Suspect]
     Indication: HYPERTENSION
     Dosage: 80 MG, QD
     Route: 048
     Dates: start: 20031126, end: 20041201
  5. DIOVAN [Suspect]
     Dosage: 40 MG, QD
     Route: 048
     Dates: start: 20030924, end: 20031125
  6. DIOVAN [Suspect]
     Dosage: 80 MG, QD
     Route: 048
     Dates: start: 20030716, end: 20030923

REACTIONS (7)
  - BLOOD POTASSIUM INCREASED [None]
  - CARDIAC FAILURE ACUTE [None]
  - CHEST DISCOMFORT [None]
  - CONDITION AGGRAVATED [None]
  - DYSPNOEA [None]
  - RENAL FAILURE [None]
  - SINUS TACHYCARDIA [None]
